FAERS Safety Report 5006928-6 (Version None)
Quarter: 2006Q2

REPORT INFORMATION
  Report Type: 
  Country: None (occurrence: None)
  Receive Date: 20060517
  Receipt Date: 20060505
  Transmission Date: 20061013
  Serious: Yes (Hospitalization)
  Sender: FDA-Public Use
  Company Number: 13391

PATIENT
  Age: 74 Year
  Sex: Female

DRUGS (2)
  1. PACLITAXEL [Suspect]
  2. CARBOPLATIN [Suspect]

REACTIONS (3)
  - ANAEMIA [None]
  - FEBRILE NEUTROPENIA [None]
  - PLATELET COUNT DECREASED [None]
